FAERS Safety Report 18235568 (Version 2)
Quarter: 2020Q3

REPORT INFORMATION
  Report Type: Spontaneous
  Country: DE (occurrence: DE)
  Receive Date: 20200905
  Receipt Date: 20200916
  Transmission Date: 20201103
  Serious: Yes (Other)
  Sender: FDA-Public Use
  Company Number: DE-AUROBINDO-AUR-APL-2020-045860

PATIENT
  Age: 64 Year
  Sex: Female

DRUGS (2)
  1. BUCAIN HYPERBAR 5 MG/ML  SOLUTION FOR INJECTION [Suspect]
     Active Substance: BUPIVACAINE
     Indication: KNEE OPERATION
  2. BUCAIN HYPERBAR 5 MG/ML  SOLUTION FOR INJECTION [Suspect]
     Active Substance: BUPIVACAINE
     Indication: ANAESTHESIA
     Dosage: UNK
     Route: 065
     Dates: start: 20200824

REACTIONS (1)
  - Drug ineffective [Unknown]

NARRATIVE: CASE EVENT DATE: 20200824
